FAERS Safety Report 22829070 (Version 5)
Quarter: 2024Q4

REPORT INFORMATION
  Report Type: Spontaneous
  Country: US (occurrence: US)
  Receive Date: 20230816
  Receipt Date: 20241209
  Transmission Date: 20250114
  Serious: No
  Sender: PFIZER
  Company Number: US-PFIZER INC-PV202300138574

PATIENT
  Age: 75 Year
  Sex: Female
  Weight: 59.1 kg

DRUGS (2)
  1. IBRANCE [Suspect]
     Active Substance: PALBOCICLIB
     Indication: Breast cancer metastatic
     Dosage: 1 TABLET (125MG TOTAL) ONE TIME EACH DAY, TAKE ON DAYS 1-21 OF EACH 28 DAY CYCLE
     Route: 048
     Dates: start: 20230827
  2. LETROZOLE [Concomitant]
     Active Substance: LETROZOLE
     Indication: Breast cancer metastatic
     Dosage: 2.5 MG, DAILY
     Dates: start: 20230827

REACTIONS (2)
  - Back pain [Recovering/Resolving]
  - Fatigue [Unknown]
